FAERS Safety Report 12053742 (Version 1)
Quarter: 2016Q1

REPORT INFORMATION
  Report Type: Spontaneous
  Country: US (occurrence: US)
  Receive Date: 20160209
  Receipt Date: 20160209
  Transmission Date: 20160526
  Serious: Yes (Hospitalization, Other)
  Sender: FDA-Public Use
  Company Number: US-PFIZER INC-2016063290

PATIENT
  Age: 17 Year
  Sex: Male

DRUGS (6)
  1. METHSUXIMIDE [Concomitant]
     Active Substance: METHSUXIMIDE
     Indication: SEIZURE
     Dosage: 300 MG, 3X/DAY
  2. PHENOBARBITAL. [Concomitant]
     Active Substance: PHENOBARBITAL
     Indication: SEIZURE
     Dosage: 60 MG, DAILY
  3. PRIMIDONE. [Concomitant]
     Active Substance: PRIMIDONE
     Indication: SEIZURE
     Dosage: 250 MG, 3X/DAY
  4. PHENYTOIN. [Suspect]
     Active Substance: PHENYTOIN
     Dosage: 200 MG, SINGLE
  5. PHENYTOIN. [Suspect]
     Active Substance: PHENYTOIN
     Indication: SEIZURE
     Dosage: 100 MG, 3X/DAY
  6. METHYLPHENIDATE. [Concomitant]
     Active Substance: METHYLPHENIDATE
     Indication: SEIZURE
     Dosage: 5 MG, 2X/DAY

REACTIONS (8)
  - Toxicity to various agents [Recovered/Resolved]
  - Nystagmus [Recovered/Resolved]
  - Anticonvulsant drug level increased [Recovered/Resolved]
  - Condition aggravated [Unknown]
  - Ataxia [Recovered/Resolved]
  - Lethargy [Recovering/Resolving]
  - Generalised tonic-clonic seizure [Unknown]
  - Gingival hypertrophy [Recovering/Resolving]
